FAERS Safety Report 8399465-2 (Version None)
Quarter: 2012Q2

REPORT INFORMATION
  Report Type: 
  Country: None (occurrence: None)
  Receive Date: 20120531
  Receipt Date: 20120522
  Transmission Date: 20120825
  Serious: No
  Sender: FDA-Public Use
  Company Number: US-ASTRAZENECA-2012SE23836

PATIENT
  Sex: Female

DRUGS (9)
  1. SYMBICORT [Suspect]
     Dosage: 160/4.5 MCG, ONE PUFF  TWO TIMES A DAY IF NEEDED
     Route: 055
  2. SYMBICORT [Suspect]
     Indication: ASTHMA
     Dosage: 160/4.5 MCG, TWO TIMES A DAY
     Route: 055
  3. SYMBICORT [Suspect]
     Indication: BRONCHITIS CHRONIC
     Dosage: 160/4.5 MCG, TWO TIMES A DAY
     Route: 055
  4. SYMBICORT [Suspect]
     Dosage: 160/4.5 MCG, ONE PUFF  TWO TIMES A DAY IF NEEDED
     Route: 055
  5. SYMBICORT [Suspect]
     Dosage: 160/4.5 MCG, ONE PUFF  TWO TIMES A DAY IF NEEDED
     Route: 055
  6. SYMBICORT [Suspect]
     Dosage: 160/4.5 MCG, ONE PUFF AT NIGHT
     Route: 055
  7. SYMBICORT [Suspect]
     Dosage: 160/4.5 MCG, ONE PUFF AT NIGHT
     Route: 055
  8. SYMBICORT [Suspect]
     Indication: MULTIPLE ALLERGIES
     Dosage: 160/4.5 MCG, TWO TIMES A DAY
     Route: 055
  9. SYMBICORT [Suspect]
     Dosage: 160/4.5 MCG, ONE PUFF AT NIGHT
     Route: 055

REACTIONS (4)
  - COUGH [None]
  - THROAT IRRITATION [None]
  - OFF LABEL USE [None]
  - INTENTIONAL DRUG MISUSE [None]
